FAERS Safety Report 7675095-2 (Version None)
Quarter: 2011Q3

REPORT INFORMATION
  Report Type: 
  Country: None (occurrence: None)
  Receive Date: 20110810
  Receipt Date: 20110808
  Transmission Date: 20111222
  Serious: Yes (Hospitalization, Other)
  Sender: FDA-Public Use
  Company Number: US-MERCK-1106USA00671

PATIENT
  Age: 65 Year
  Sex: Female

DRUGS (5)
  1. FOSAMAX [Suspect]
     Indication: OSTEOPENIA
     Route: 048
     Dates: start: 20020101, end: 20100301
  2. FOSAMAX PLUS D [Suspect]
     Indication: OSTEOPENIA
     Route: 048
     Dates: start: 20080421, end: 20080512
  3. FOSAMAX [Suspect]
     Route: 048
     Dates: start: 20020101, end: 20100101
  4. FOSAMAX [Suspect]
     Route: 048
     Dates: start: 20020101, end: 20100101
  5. FOSAMAX [Suspect]
     Indication: OSTEOPOROSIS
     Route: 048
     Dates: start: 20020101, end: 20100301

REACTIONS (11)
  - ANXIETY [None]
  - OSTEONECROSIS [None]
  - ARTHROPATHY [None]
  - OBSESSIVE-COMPULSIVE DISORDER [None]
  - GASTROOESOPHAGEAL REFLUX DISEASE [None]
  - BONE DISORDER [None]
  - ATTENTION DEFICIT/HYPERACTIVITY DISORDER [None]
  - LOW TURNOVER OSTEOPATHY [None]
  - FRACTURE [None]
  - FEMORAL NECK FRACTURE [None]
  - DEPRESSION [None]
